FAERS Safety Report 4777423-4 (Version None)
Quarter: 2005Q3

REPORT INFORMATION
  Report Type: 
  Country: None (occurrence: None)
  Receive Date: 20050915
  Receipt Date: 20050830
  Transmission Date: 20060218
  Serious: Yes (Other)
  Sender: FDA-Public Use
  Company Number: 2005BL004324

PATIENT
  Age: 34 Year
  Sex: Female
  Weight: 68.0396 kg

DRUGS (11)
  1. NEOMYCIN AND POLYMXIN B SULFATES AND HYDROCORTISONE [Suspect]
     Indication: OTITIS EXTERNA
     Dosage: SEE IMAGE, TOPICAL
     Route: 061
     Dates: start: 20020508, end: 20020601
  2. NEOMYCIN AND POLYMXIN B SULFATES AND HYDROCORTISONE [Suspect]
     Indication: OTITIS EXTERNA
     Dosage: SEE IMAGE, TOPICAL
     Route: 061
     Dates: start: 20020602, end: 20020730
  3. NEOMYCIN AND POLYMXIN B SULFATES AND HYDROCORTISONE [Suspect]
     Indication: OTITIS EXTERNA
     Dosage: SEE IMAGE, TOPICAL
     Route: 061
     Dates: start: 20020731, end: 20020803
  4. NEOMYCIN AND POLYMXIN B SULFATES AND HYDROCORTISONE [Suspect]
  5. FLOXIN OTIC [Suspect]
     Indication: OTITIS EXTERNA
     Dosage: SEE IMAGE, TOPICAL
     Route: 061
     Dates: start: 20020425, end: 20020508
  6. FLOXIN OTIC [Suspect]
     Indication: OTITIS EXTERNA
     Dosage: SEE IMAGE, TOPICAL
     Route: 061
     Dates: start: 20020807, end: 20020801
  7. FLOXIN OTIC [Suspect]
     Indication: OTITIS EXTERNA
     Dosage: SEE IMAGE, TOPICAL
     Route: 061
     Dates: start: 20020828, end: 20020903
  8. FLOXIN OTIC [Suspect]
     Indication: OTITIS EXTERNA
     Dosage: SEE IMAGE, TOPICAL
     Route: 061
     Dates: start: 20030507, end: 20030514
  9. AMBIEN [Concomitant]
  10. ZOLOFT [Concomitant]
  11. CIPRO [Concomitant]

REACTIONS (19)
  - COMPLEX REGIONAL PAIN SYNDROME [None]
  - CONDITION AGGRAVATED [None]
  - CONDUCTIVE DEAFNESS [None]
  - DRUG INTERACTION [None]
  - FACIAL PALSY [None]
  - HEARING IMPAIRED [None]
  - INCORRECT DRUG ADMINISTRATION DURATION [None]
  - JOINT DISLOCATION [None]
  - MASTOID DISORDER [None]
  - NECK PAIN [None]
  - NEURALGIA [None]
  - OTOTOXICITY [None]
  - PAIN IN JAW [None]
  - PROCEDURAL PAIN [None]
  - REFUSAL OF TREATMENT BY PATIENT [None]
  - SCAR [None]
  - TEMPOROMANDIBULAR JOINT SYNDROME [None]
  - THERAPY NON-RESPONDER [None]
  - TYMPANIC MEMBRANE PERFORATION [None]
